FAERS Safety Report 17194025 (Version 1)
Quarter: 2019Q4

REPORT INFORMATION
  Report Type: Spontaneous
  Country: DE (occurrence: DE)
  Receive Date: 20191223
  Receipt Date: 20191223
  Transmission Date: 20200122
  Serious: Yes (Other)
  Sender: FDA-Public Use
  Company Number: DE-AUROBINDO-AUR-APL-2019-106413

PATIENT
  Age: 48 Year
  Sex: Female
  Weight: 120 kg

DRUGS (7)
  1. VENLAFAXINE [Suspect]
     Active Substance: VENLAFAXINE HYDROCHLORIDE
     Indication: ANXIETY
     Dosage: 37.5 MILLIGRAM, ONCE A DAY
     Route: 065
     Dates: start: 20180614, end: 20180620
  2. TECFIDERA [Suspect]
     Active Substance: DIMETHYL FUMARATE
     Dosage: 360 MILLIGRAM
     Route: 048
     Dates: start: 2017
  3. VENLAFAXINE [Suspect]
     Active Substance: VENLAFAXINE HYDROCHLORIDE
     Indication: DEPRESSION
     Dosage: 75 MILLIGRAM, ONCE A DAY
     Route: 048
     Dates: start: 20180621, end: 20180917
  4. TECFIDERA [Suspect]
     Active Substance: DIMETHYL FUMARATE
     Indication: MULTIPLE SCLEROSIS
     Dosage: UNK, ONCE A DAY 2 OT, QD (120 MG PLUS 240 MG)
     Route: 048
  5. TECFIDERA [Suspect]
     Active Substance: DIMETHYL FUMARATE
     Dosage: 480 MILLIGRAM, ONCE A DAY
     Route: 048
     Dates: start: 20171212
  6. TECFIDERA [Suspect]
     Active Substance: DIMETHYL FUMARATE
     Dosage: 240 MILLIGRAM, ONCE A DAY
     Route: 048
     Dates: start: 2017
  7. TECFIDERA [Suspect]
     Active Substance: DIMETHYL FUMARATE
     Dosage: 120 MILLIGRAM, ONCE A DAY
     Route: 048
     Dates: start: 20171117

REACTIONS (5)
  - Pancreatic failure [Not Recovered/Not Resolved]
  - Abdominal pain lower [Unknown]
  - Gastrointestinal pain [Unknown]
  - Flatulence [Unknown]
  - Prescribed underdose [Unknown]

NARRATIVE: CASE EVENT DATE: 201804
